FAERS Safety Report 5535687-3 (Version None)
Quarter: 2007Q4

REPORT INFORMATION
  Report Type: 
  Country: None (occurrence: None)
  Receive Date: 20071206
  Receipt Date: 20070312
  Transmission Date: 20080405
  Serious: Yes (Hospitalization)
  Sender: FDA-Public Use
  Company Number: US-AMGEN-US208807

PATIENT
  Sex: Female

DRUGS (13)
  1. ENBREL [Suspect]
     Indication: RHEUMATOID ARTHRITIS
     Route: 058
     Dates: start: 20060205
  2. ACTONEL [Concomitant]
     Dates: start: 20060406
  3. ADVAIR DISKUS 100/50 [Concomitant]
  4. ALBUTEROL [Concomitant]
  5. ATROVENT [Concomitant]
  6. IMDUR [Concomitant]
  7. K-DUR 10 [Concomitant]
  8. LASIX [Concomitant]
  9. LIPITOR [Concomitant]
  10. METHOTREXATE [Concomitant]
  11. NEXIUM [Concomitant]
  12. PLAVIX [Concomitant]
  13. PREDNISONE TAB [Concomitant]

REACTIONS (2)
  - PULMONARY EMBOLISM [None]
  - VISION BLURRED [None]
